FAERS Safety Report 8215323-8 (Version None)
Quarter: 2012Q1

REPORT INFORMATION
  Report Type: 
  Country: None (occurrence: None)
  Receive Date: 20120229
  Receipt Date: 20111017
  Transmission Date: 20120608
  Serious: Yes (Hospitalization)
  Sender: FDA-Public Use
  Company Number: PHEH2011US07046

PATIENT
  Age: 69 Year
  Sex: Male

DRUGS (1)
  1. NEORAL [Suspect]
     Indication: RENAL TRANSPLANT
     Dosage: 100 MG, BID, ORAL
     Route: 048
     Dates: start: 20070101

REACTIONS (3)
  - WOUND INFECTION [None]
  - LOCALISED INFECTION [None]
  - ERYTHEMA [None]
